FAERS Safety Report 22629139 (Version 1)
Quarter: 2023Q2

REPORT INFORMATION
  Report Type: Spontaneous
  Country: US (occurrence: US)
  Receive Date: 20230622
  Receipt Date: 20230622
  Transmission Date: 20230722
  Serious: No
  Sender: FDA-Public Use
  Company Number: US-BAYER-2023A087066

PATIENT
  Age: 76 Year
  Sex: Female

DRUGS (1)
  1. KERENDIA [Suspect]
     Active Substance: FINERENONE
     Dosage: 10 MG, QD
     Dates: start: 20221001

REACTIONS (3)
  - Skin swelling [None]
  - Axillary mass [None]
  - Synovial cyst [None]

NARRATIVE: CASE EVENT DATE: 20230520
